FAERS Safety Report 4782090-X (Version None)
Quarter: 2005Q3

REPORT INFORMATION
  Report Type: 
  Country: None (occurrence: None)
  Receive Date: 20050928
  Receipt Date: 20050916
  Transmission Date: 20060218
  Serious: Yes (Other)
  Sender: FDA-Public Use
  Company Number: NL-MERCK-0509NLD00024

PATIENT
  Age: 30 Year
  Sex: Female

DRUGS (12)
  1. VINCRISTINE SULFATE [Concomitant]
     Indication: METASTASIS
     Route: 065
  2. CISPLATIN [Concomitant]
     Indication: CHORIOCARCINOMA
     Route: 065
  3. CISPLATIN [Concomitant]
     Indication: METASTASIS
     Route: 065
  4. COSMEGEN [Suspect]
     Indication: CHORIOCARCINOMA
     Route: 065
  5. COSMEGEN [Suspect]
     Indication: METASTASIS
     Route: 065
  6. CYCLOPHOSPHAMIDE [Concomitant]
     Indication: CHORIOCARCINOMA
     Route: 065
  7. CYCLOPHOSPHAMIDE [Concomitant]
     Indication: METASTASIS
     Route: 065
  8. ETOPOSIDE [Concomitant]
     Indication: CHORIOCARCINOMA
     Route: 065
  9. ETOPOSIDE [Concomitant]
     Indication: METASTASIS
     Route: 065
  10. METHOTREXATE [Concomitant]
     Indication: CHORIOCARCINOMA
     Route: 065
  11. METHOTREXATE [Concomitant]
     Indication: METASTASIS
     Route: 065
  12. VINCRISTINE SULFATE [Concomitant]
     Indication: CHORIOCARCINOMA
     Route: 065

REACTIONS (4)
  - BLOOD PRESSURE DECREASED [None]
  - DYSPNOEA [None]
  - HAEMORRHAGE [None]
  - PULMONARY HAEMORRHAGE [None]
